FAERS Safety Report 20264327 (Version 2)
Quarter: 2022Q1

REPORT INFORMATION
  Report Type: Report from Study
  Country: FR (occurrence: None)
  Receive Date: 20211231
  Receipt Date: 20220216
  Transmission Date: 20220423
  Serious: Yes (Hospitalization)
  Sender: FDA-Public Use
  Company Number: FR-ROCHE-2990011

PATIENT
  Age: 76 Year
  Sex: Male

DRUGS (10)
  1. ATEZOLIZUMAB [Suspect]
     Active Substance: ATEZOLIZUMAB
     Indication: Neoplasm
     Dosage: ON 07/MAY/2020, RECEIVED MOST RECENT DOSE.?ATEZOLIZUMAB IV: 1200 MG ON 07-MAY-2020 FOR CUMULATIVE DO
     Route: 041
     Dates: start: 20200507
  2. RUCAPARIB [Suspect]
     Active Substance: RUCAPARIB
     Indication: Neoplasm
     Dosage: ON 07/MAY/2020, RECEIVED MOST RECENT DOSE.?RUCAPARIB IV: 1000 MG, FROM 16-APR-2020 TO 06-MAY-2020 FO
     Route: 042
     Dates: start: 20200416
  3. OXAZEPAM [Concomitant]
     Active Substance: OXAZEPAM
     Dosage: 10MG TABLETS PO TWICE A DAY
     Route: 048
  4. FERROUS FUMARATE [Concomitant]
     Active Substance: FERROUS FUMARATE
     Dosage: 66MG TABLETS PO TWICE A DAY
     Route: 048
  5. BISOPROLOL [Concomitant]
     Active Substance: BISOPROLOL
     Dosage: 10MG TABLETS PO 1TAB/DAY
     Route: 048
  6. EXFORGE [Concomitant]
     Active Substance: AMLODIPINE BESYLATE\VALSARTAN
     Dosage: 5MG/80MG TABLETS PO 1TAB/DAY
     Route: 048
  7. FLECAINIDE [Concomitant]
     Active Substance: FLECAINIDE
     Dosage: 50MG GELULE PO 1TAB/DAY
     Route: 048
  8. FLECAINIDE [Concomitant]
     Active Substance: FLECAINIDE
     Dosage: 100MG GELULE PO 1TAB/DAY
     Route: 048
  9. SPIRONOLACTONE [Concomitant]
     Active Substance: SPIRONOLACTONE
     Dosage: 25MG TABLETS PO 1TAB/DAY
     Route: 048
  10. KARDEGIC [Concomitant]
     Active Substance: ASPIRIN DL-LYSINE
     Dosage: 75MG PO 1POCKET/DAY
     Route: 048

REACTIONS (1)
  - Anaemia [Recovered/Resolved]

NARRATIVE: CASE EVENT DATE: 20200508
